FAERS Safety Report 6576975-1 (Version None)
Quarter: 2010Q1

REPORT INFORMATION
  Report Type: 
  Country: None (occurrence: None)
  Receive Date: 20100210
  Receipt Date: 20100203
  Transmission Date: 20100710
  Serious: Yes (Other)
  Sender: FDA-Public Use
  Company Number: US-GENENTECH-296250

PATIENT
  Sex: Female
  Weight: 75.283 kg

DRUGS (8)
  1. RITUXAN [Suspect]
     Indication: RHEUMATOID ARTHRITIS
     Dosage: 1000 MG, X2 (14 DAYS APART)
     Route: 042
     Dates: start: 20090818
  2. RITUXAN [Suspect]
     Dosage: 1000 MG, Q2W
     Route: 042
     Dates: start: 20090903
  3. METHOTREXATE [Concomitant]
     Indication: DRUG USE FOR UNKNOWN INDICATION
  4. AMBIEN [Concomitant]
     Indication: DRUG USE FOR UNKNOWN INDICATION
  5. ACIPHEX [Concomitant]
     Indication: DRUG USE FOR UNKNOWN INDICATION
  6. BENADRYL [Concomitant]
     Indication: PREMEDICATION
     Dosage: 50 MG, UNK
  7. TYLENOL-500 [Concomitant]
     Indication: PREMEDICATION
     Dosage: 500 MG, UNK
  8. REMICADE [Concomitant]
     Indication: DRUG USE FOR UNKNOWN INDICATION

REACTIONS (3)
  - NODULE ON EXTREMITY [None]
  - PRURITUS [None]
  - SERUM SICKNESS [None]
